FAERS Safety Report 14236433 (Version 1)
Quarter: 2017Q4

REPORT INFORMATION
  Report Type: Spontaneous
  Country: US (occurrence: US)
  Receive Date: 20171129
  Receipt Date: 20171129
  Transmission Date: 20180321
  Serious: No
  Sender: FDA-Public Use
  Company Number: US-PFIZER INC-2017510863

PATIENT
  Age: 72 Year
  Sex: Female
  Weight: 51.94 kg

DRUGS (13)
  1. CALCIUM CITRATE [Concomitant]
     Active Substance: CALCIUM CITRATE
     Indication: MINERAL SUPPLEMENTATION
     Dosage: 1 TABLET TWICE A DAY BY MOUTH
     Route: 048
  2. ADVIL [Suspect]
     Active Substance: IBUPROFEN
     Indication: HEADACHE
     Dosage: 2 DF, AS NEEDED ^EVERY 4 HOURS^
     Dates: start: 201711, end: 201711
  3. ALLEGRA [Concomitant]
     Active Substance: FEXOFENADINE HYDROCHLORIDE
     Indication: HYPERSENSITIVITY
     Dosage: 1 TABLET ONCE A DAY BY MOUTH
     Route: 048
  4. TUMS [Concomitant]
     Active Substance: CALCIUM CARBONATE
     Indication: HYPERCHLORHYDRIA
     Dosage: 2 TUMS A DAY AS NEEDED BY MOUTH
     Route: 048
  5. TYLENOL [Concomitant]
     Active Substance: ACETAMINOPHEN
     Indication: MUSCULOSKELETAL PAIN
  6. VITAMIN D [Concomitant]
     Active Substance: CHOLECALCIFEROL
     Indication: VITAMIN SUPPLEMENTATION
     Dosage: 1000 UNITS 2 TABLETS ONCE A DAY BY MOUTH
     Route: 048
  7. TYLENOL [Concomitant]
     Active Substance: ACETAMINOPHEN
     Indication: HEADACHE
     Dosage: 500MG 1 TABLET EVERY 6 HOURS BY MOUTH AS NEEDED
     Route: 048
  8. PHAZYME [Concomitant]
     Active Substance: DIMETHICONE 410
     Indication: GASTRITIS
     Dosage: 180MG AFTER EACH MEAL BY MOUTH
     Route: 048
  9. ADVIL [Suspect]
     Active Substance: IBUPROFEN
     Indication: NECK PAIN
     Dosage: 2 DF, AS NEEDED ^EVERY 4 HOURS^
     Dates: start: 20171126
  10. TYLENOL [Concomitant]
     Active Substance: ACETAMINOPHEN
     Indication: NECK PAIN
  11. ADVIL [Suspect]
     Active Substance: IBUPROFEN
     Indication: MUSCULOSKELETAL PAIN
  12. RESTASIS [Concomitant]
     Active Substance: CYCLOSPORINE
     Indication: DRY EYE
     Dosage: 1 DROP PER EYE TWICE A DAY
  13. ZANTAC [Concomitant]
     Active Substance: RANITIDINE HYDROCHLORIDE
     Indication: GASTROOESOPHAGEAL REFLUX DISEASE
     Dosage: 150MG AS NEEDED BY MOUTH
     Route: 048

REACTIONS (3)
  - Pruritus [Not Recovered/Not Resolved]
  - Back disorder [Not Recovered/Not Resolved]
  - Intentional overdose [Unknown]
